FAERS Safety Report 19418019 (Version 2)
Quarter: 2021Q2

REPORT INFORMATION
  Report Type: Spontaneous
  Country: DE (occurrence: DE)
  Receive Date: 20210615
  Receipt Date: 20210624
  Transmission Date: 20210717
  Serious: Yes (Other)
  Sender: FDA-Public Use
  Company Number: DE-TEVA-2021-DE-1922721

PATIENT
  Age: 48 Year
  Sex: Female

DRUGS (4)
  1. CEFUROXIME. [Suspect]
     Active Substance: CEFUROXIME
     Indication: ANTIBIOTIC THERAPY
     Dosage: GIVEN 3 TIMES A DAY
     Route: 048
  2. HYALURONIDASE [Suspect]
     Active Substance: HYALURONIDASE
     Indication: VASCULAR OCCLUSION
     Dosage: 2 ML OF HYALURONIDASE 150 IU/ML WAS INJECTED LESIONAL AND PRELESIONAL
     Route: 050
  3. IBUPROFEN. [Suspect]
     Active Substance: IBUPROFEN
     Indication: PAIN
     Dosage: WHEN NECESSARY
     Route: 048
  4. HYALURONIC ACID [Suspect]
     Active Substance: HYALURONIC ACID
     Indication: SKIN COSMETIC PROCEDURE
     Dosage: BILATERAL NASOLABIAL INJECTION
     Route: 050

REACTIONS (2)
  - Condition aggravated [Recovered/Resolved]
  - Vascular occlusion [Recovered/Resolved]
